FAERS Safety Report 7390531-7 (Version None)
Quarter: 2011Q2

REPORT INFORMATION
  Report Type: 
  Country: None (occurrence: None)
  Receive Date: 20110403
  Receipt Date: 20110325
  Transmission Date: 20111010
  Serious: Yes (Death, Other)
  Sender: FDA-Public Use
  Company Number: PL-CELGENEUS-129-50794-11033120

PATIENT

DRUGS (1)
  1. VIDAZA [Suspect]
     Dosage: 75 MILLIGRAM/SQ. METER
     Route: 065
     Dates: start: 20090601, end: 20110301

REACTIONS (15)
  - DEATH [None]
  - RENAL FAILURE [None]
  - ANAEMIA [None]
  - MYELODYSPLASTIC SYNDROME [None]
  - ANGIOEDEMA [None]
  - NAUSEA [None]
  - NEUTROPENIA [None]
  - INJECTION SITE REACTION [None]
  - SEPTIC SHOCK [None]
  - THROMBOCYTOPENIA [None]
  - GASTROINTESTINAL HAEMORRHAGE [None]
  - PULMONARY MYCOSIS [None]
  - VOMITING [None]
  - DIARRHOEA [None]
  - CEREBRAL ISCHAEMIA [None]
